FAERS Safety Report 4487959-1 (Version None)
Quarter: 2004Q4

REPORT INFORMATION
  Report Type: 
  Country: None (occurrence: None)
  Receive Date: 20041026
  Receipt Date: 20041007
  Transmission Date: 20050328
  Serious: Yes (Hospitalization, Other)
  Sender: FDA-Public Use
  Company Number: USA041080574

PATIENT
  Age: 77 Year
  Sex: Female

DRUGS (3)
  1. EVISTA [Suspect]
     Indication: OSTEOPENIA
  2. ACTONEL [Concomitant]
  3. CORTISONE [Concomitant]

REACTIONS (5)
  - ARTHRALGIA [None]
  - MUSCLE CRAMP [None]
  - OSTEITIS DEFORMANS [None]
  - OSTEOPOROSIS [None]
  - POST PROCEDURAL PAIN [None]
